FAERS Safety Report 11835540 (Version 1)
Quarter: 2015Q4

REPORT INFORMATION
  Report Type: Spontaneous
  Country: GB (occurrence: GB)
  Receive Date: 20151215
  Receipt Date: 20151215
  Transmission Date: 20160305
  Serious: Yes (Other)
  Sender: FDA-Public Use
  Company Number: GB-DRREDDYS-GER/UKI/15/0054630

PATIENT
  Age: 33 Year
  Sex: Female
  Weight: 80 kg

DRUGS (1)
  1. DULOXETINE. [Suspect]
     Active Substance: DULOXETINE
     Indication: DEPRESSION
     Route: 048

REACTIONS (3)
  - Haematochezia [Unknown]
  - Painful defaecation [Not Recovered/Not Resolved]
  - Constipation [Not Recovered/Not Resolved]
